FAERS Safety Report 21833746 (Version 1)
Quarter: 2023Q1

REPORT INFORMATION
  Report Type: Spontaneous
  Country: US (occurrence: US)
  Receive Date: 20230107
  Receipt Date: 20230107
  Transmission Date: 20230418
  Serious: No
  Sender: FDA-Public Use
  Company Number: US-SA-SAC20230106000400

PATIENT
  Sex: Female

DRUGS (10)
  1. DUPIXENT [Suspect]
     Active Substance: DUPILUMAB
     Indication: Dermatitis
     Dosage: 600 MG, 1X
     Route: 058
  2. ALBUTEROL SULFATE [Concomitant]
     Active Substance: ALBUTEROL SULFATE
     Dosage: UNK
  3. BOOSTRIX [Concomitant]
     Active Substance: TETANUS TOXOID, REDUCED DIPHTHERIA TOXOID AND ACELLULAR PERTUSSIS VACCINE, ADSORBED ANTIGENS
  4. FLOVENT HFA [Concomitant]
     Active Substance: FLUTICASONE PROPIONATE
  5. NABUMETONE [Concomitant]
     Active Substance: NABUMETONE
  6. BETAMETHASONE DIPROPIONATE [Concomitant]
     Active Substance: BETAMETHASONE DIPROPIONATE
  7. FLUOCINOLONE [Concomitant]
     Active Substance: FLUOCINOLONE
  8. HYDROCORTISONE ACETATE [Concomitant]
     Active Substance: HYDROCORTISONE ACETATE
  9. METHOCARBAMOL [Concomitant]
     Active Substance: METHOCARBAMOL
  10. NABUMETONE [Concomitant]
     Active Substance: NABUMETONE

REACTIONS (4)
  - Dry eye [Unknown]
  - Memory impairment [Unknown]
  - Sleep disorder [Unknown]
  - Product use in unapproved indication [Unknown]
